FAERS Safety Report 10361012 (Version 1)
Quarter: 2014Q3

REPORT INFORMATION
  Report Type: Spontaneous
  Country: FR (occurrence: None)
  Receive Date: 20140731
  Receipt Date: 20140731
  Transmission Date: 20150326
  Serious: Yes (Hospitalization)
  Sender: FDA-Public Use
  Company Number: FK201402964

PATIENT
  Age: 74 Year
  Sex: Male

DRUGS (20)
  1. GENTAMICIN [Concomitant]
     Active Substance: GENTAMICIN
  2. LEVOFLOXACIN ( LEVOFLOXACIN) [Concomitant]
     Active Substance: LEVOFLOXACIN
  3. SEROPLEX [Concomitant]
     Active Substance: ESCITALOPRAM OXALATE
  4. DOLIPRANE [Concomitant]
     Active Substance: ACETAMINOPHEN
  5. VANCOMYCIN [Concomitant]
     Active Substance: VANCOMYCIN
  6. LASILIX [Concomitant]
     Active Substance: FUROSEMIDE
  7. LOVENOX [Suspect]
     Active Substance: ENOXAPARIN SODIUM
     Indication: ANTICOAGULANT THERAPY
     Route: 058
     Dates: start: 20140528, end: 20140606
  8. KARDEGIC [Concomitant]
     Active Substance: ASPIRIN LYSINE
  9. PIPERACILIN/TAZOBACTAM [Concomitant]
     Active Substance: PIPERACILLIN SODIUM\TAZOBACTAM SODIUM
  10. LYRICA [Suspect]
     Active Substance: PREGABALIN
     Indication: PAIN
     Route: 048
     Dates: start: 20140526, end: 20140528
  11. CARDENSIEL [Concomitant]
     Active Substance: BISOPROLOL FUMARATE
  12. ROPIVACAINE [Suspect]
     Active Substance: ROPIVACAINE
     Indication: PAIN
     Dosage: INTRAVENOUS ( NOT OTHERWISE SPECIFIED)
     Route: 042
     Dates: start: 20140527, end: 20140529
  13. VANCOMYCINE [Suspect]
     Active Substance: VANCOMYCIN
     Indication: ARTHRITIS BACTERIAL
     Dosage: 500 MG, 3 IN 1 D, INTRAVENOUS ( NOT OTHERWISE SPECIFIED)
     Dates: start: 20140527, end: 20140610
  14. GENTAMICIN [Suspect]
     Active Substance: GENTAMICIN
     Indication: ARTHRITIS BACTERIAL
     Dosage: 500 MG, 3 IN 1 D, INTRAVENOUS ( NOT SPECIFIED)
     Route: 042
     Dates: start: 20140527, end: 20140528
  15. CORTANCYL [Concomitant]
     Active Substance: PREDNISONE
  16. CRESTOR [Concomitant]
     Active Substance: ROSUVASTATIN CALCIUM
  17. SOLU-MEDROL [Concomitant]
     Active Substance: METHYLPREDNISOLONE SODIUM SUCCINATE
  18. CEFTRIAXONE. [Concomitant]
     Active Substance: CEFTRIAXONE
  19. RIFAMPIN. [Concomitant]
     Active Substance: RIFAMPIN
  20. COUMADINE [Concomitant]
     Active Substance: WARFARIN SODIUM

REACTIONS (3)
  - Renal failure acute [None]
  - Histiocytosis haematophagic [None]
  - Drug reaction with eosinophilia and systemic symptoms [None]

NARRATIVE: CASE EVENT DATE: 20140610
